FAERS Safety Report 19167639 (Version 1)
Quarter: 2021Q2

REPORT INFORMATION
  Report Type: Spontaneous
  Country: US (occurrence: US)
  Receive Date: 20210420
  Receipt Date: 20210420
  Transmission Date: 20210717
  Serious: Yes (Hospitalization)
  Sender: FDA-Public Use
  Company Number: None

PATIENT
  Age: 46 Year
  Sex: Male
  Weight: 59 kg

DRUGS (1)
  1. PEMBROLIZUMAB (PEMBROLIZUMAB 25 MG/ML INJ, SOLN, 4ML) [Suspect]
     Active Substance: PEMBROLIZUMAB
     Indication: SQUAMOUS CELL CARCINOMA OF THE ORAL CAVITY
     Route: 042
     Dates: start: 20200506

REACTIONS (2)
  - Adrenal insufficiency [None]
  - Hypotension [None]

NARRATIVE: CASE EVENT DATE: 20201104
